FAERS Safety Report 18786292 (Version 1)
Quarter: 2021Q1

REPORT INFORMATION
  Report Type: Spontaneous
  Country: US (occurrence: US)
  Receive Date: 20210125
  Receipt Date: 20210125
  Transmission Date: 20210419
  Serious: No
  Sender: FDA-Public Use
  Company Number: US-SMITH AND NEPHEW, INC-2020SMT00058

PATIENT
  Age: 76 Year
  Sex: Female
  Weight: 52.15 kg

DRUGS (1)
  1. REGRANEX [Suspect]
     Active Substance: BECAPLERMIN
     Indication: SKIN ULCER
     Dosage: ^1/4 TO 1/2 INCH^, 1X/DAY
     Route: 061
     Dates: start: 20200709, end: 20200712

REACTIONS (3)
  - Application site pain [Recovering/Resolving]
  - Application site erythema [Recovering/Resolving]
  - Off label use [Recovered/Resolved]

NARRATIVE: CASE EVENT DATE: 20200709
